FAERS Safety Report 19050758 (Version 1)
Quarter: 2021Q1

REPORT INFORMATION
  Report Type: Spontaneous
  Country: US (occurrence: US)
  Receive Date: 20210322
  Receipt Date: 20210322
  Transmission Date: 20210420
  Serious: Yes (Other)
  Sender: FDA-Public Use
  Company Number: None

PATIENT
  Age: 40 Year
  Sex: Female
  Weight: 56.7 kg

DRUGS (3)
  1. LITHIUM. [Suspect]
     Active Substance: LITHIUM
  2. NEURONTIN [Suspect]
     Active Substance: GABAPENTIN
  3. LATUDA [Suspect]
     Active Substance: LURASIDONE HYDROCHLORIDE

REACTIONS (1)
  - Placenta accreta [None]

NARRATIVE: CASE EVENT DATE: 20190827
